FAERS Safety Report 6525852-0 (Version None)
Quarter: 2010Q1

REPORT INFORMATION
  Report Type: 
  Country: None (occurrence: None)
  Receive Date: 20100104
  Receipt Date: 20091223
  Transmission Date: 20100710
  Serious: Yes (Other)
  Sender: FDA-Public Use
  Company Number: B0620835A

PATIENT
  Age: 22 Year
  Sex: Male

DRUGS (5)
  1. ONDANSETRON [Suspect]
     Route: 042
  2. FENTANYL-100 [Concomitant]
     Dates: start: 20090805
  3. PROPOFOL [Concomitant]
  4. SODIUM LACTATE IN PLASTIC CONTAINER [Concomitant]
     Dates: start: 20090805
  5. MORPHINE [Concomitant]
     Dates: start: 20090805

REACTIONS (5)
  - GRAND MAL CONVULSION [None]
  - HYPERSENSITIVITY [None]
  - INCOHERENT [None]
  - LOSS OF CONSCIOUSNESS [None]
  - RASH MACULAR [None]
